FAERS Safety Report 13863826 (Version 3)
Quarter: 2017Q4

REPORT INFORMATION
  Report Type: Spontaneous
  Country: CO (occurrence: CO)
  Receive Date: 20170814
  Receipt Date: 20171011
  Transmission Date: 20180320
  Serious: Yes (Life-Threatening, Hospitalization, Other)
  Sender: FDA-Public Use
  Company Number: CO-SUN PHARMACEUTICAL INDUSTRIES LTD-2017RR-147588

PATIENT
  Sex: Male
  Weight: 1.5 kg

DRUGS (3)
  1. DIPYRONE [Suspect]
     Active Substance: DIPYRONE
     Indication: PAIN MANAGEMENT
     Route: 064
  2. PARACETAMOL [Suspect]
     Active Substance: ACETAMINOPHEN
     Indication: PAIN MANAGEMENT
     Dosage: 1 G, TID
     Route: 064
  3. INDOMETHACIN. [Suspect]
     Active Substance: INDOMETHACIN
     Indication: PREMATURE LABOUR
     Dosage: 50 MG, TID
     Route: 064

REACTIONS (5)
  - Ductus arteriosus premature closure [Recovering/Resolving]
  - Pulmonary hypertension [Recovering/Resolving]
  - Cardiac failure [Recovering/Resolving]
  - Respiratory distress [Recovering/Resolving]
  - Foetal exposure during pregnancy [Unknown]
